FAERS Safety Report 14762328 (Version 1)
Quarter: 2018Q2

REPORT INFORMATION
  Report Type: Spontaneous
  Country: US (occurrence: US)
  Receive Date: 20180416
  Receipt Date: 20180416
  Transmission Date: 20180711
  Serious: No
  Sender: FDA-Public Use
  Company Number: US-BION-006200

PATIENT
  Age: 82 Year
  Sex: Female
  Weight: 59 kg

DRUGS (4)
  1. ALEVE [Suspect]
     Active Substance: NAPROXEN SODIUM
     Indication: PAIN
     Dosage: 1 PILL TWO TIMES PER DAY.
     Route: 048
  2. AZO [Concomitant]
     Active Substance: PHENAZOPYRIDINE HYDROCHLORIDE
  3. CALCIUM CARBONATE/COLECALCIFEROL [Concomitant]
  4. COENZYME Q10 [Concomitant]
     Active Substance: UBIDECARENONE

REACTIONS (4)
  - Product use issue [Not Recovered/Not Resolved]
  - Device use issue [Not Recovered/Not Resolved]
  - Muscle swelling [Not Recovered/Not Resolved]
  - Peripheral swelling [Unknown]
